FAERS Safety Report 16853303 (Version 2)
Quarter: 2019Q4

REPORT INFORMATION
  Report Type: Spontaneous
  Country: CO (occurrence: CO)
  Receive Date: 20190925
  Receipt Date: 20191001
  Transmission Date: 20200122
  Serious: Yes (Other)
  Sender: FDA-Public Use
  Company Number: CO-009507513-1909COL011817

PATIENT
  Sex: Female

DRUGS (1)
  1. APREPITANT. [Suspect]
     Active Substance: APREPITANT
     Dosage: DOSE 0 (UNITS NOT REPORTED), UNKNOWN

REACTIONS (1)
  - Acute stress disorder [Recovered/Resolved]
